FAERS Safety Report 9730241 (Version 1)
Quarter: 2013Q4

REPORT INFORMATION
  Report Type: Spontaneous
  Country: US (occurrence: US)
  Receive Date: 20131202
  Receipt Date: 20131202
  Transmission Date: 20140711
  Serious: Yes (Hospitalization)
  Sender: FDA-Public Use
  Company Number: US-JNJFOC-20131114876

PATIENT
  Age: 82 Year
  Sex: Female

DRUGS (11)
  1. XARELTO [Suspect]
     Indication: CEREBROVASCULAR ACCIDENT PROPHYLAXIS
     Route: 048
     Dates: start: 20130101, end: 20130705
  2. XARELTO [Suspect]
     Indication: ATRIAL FIBRILLATION
     Route: 048
     Dates: start: 20130101, end: 20130705
  3. ASPIRIN [Concomitant]
     Route: 048
  4. TRAMADOL [Concomitant]
     Dosage: AS NEEDED
     Route: 048
  5. PANTOPRAZOLE [Concomitant]
     Route: 048
  6. OMEPRAZOLE [Concomitant]
     Route: 048
  7. FUROSEMIDE [Concomitant]
     Route: 048
  8. SPIRONOLACTONE [Concomitant]
     Route: 048
  9. ATORVASTATIN [Concomitant]
     Dosage: ONCE AT BEDTIME
     Route: 048
  10. VITAMIN B12 [Concomitant]
     Route: 048
  11. CARVEDILOL [Concomitant]
     Route: 048

REACTIONS (3)
  - Gastric ulcer [Unknown]
  - Fatigue [Unknown]
  - Anaemia [Unknown]
